FAERS Safety Report 9536154 (Version 1)
Quarter: 2013Q2

REPORT INFORMATION
  Report Type: Spontaneous
  Country: US (occurrence: None)
  Receive Date: 20130507
  Receipt Date: 20130507
  Transmission Date: 20140414
  Serious: No
  Sender: FDA-Public Use
  Company Number: PHEH2013US002502

PATIENT
  Sex: Female

DRUGS (1)
  1. AFINITOR (RAD) [Suspect]
     Route: 048
     Dates: start: 20120821, end: 20121125

REACTIONS (4)
  - Pigmentation disorder [None]
  - Skin infection [None]
  - Drug ineffective [None]
  - Rash [None]
